FAERS Safety Report 8013211-3 (Version None)
Quarter: 2011Q4

REPORT INFORMATION
  Report Type: 
  Country: None (occurrence: None)
  Receive Date: 20111229
  Receipt Date: 20111221
  Transmission Date: 20120403
  Serious: Yes (Other)
  Sender: FDA-Public Use
  Company Number: GR-AMGEN-GRCSP2011025903

PATIENT
  Age: 56 Year
  Sex: Female

DRUGS (2)
  1. LIPITOR [Suspect]
     Indication: HYPERLIPIDAEMIA
     Dosage: 1 IU, UNK
     Route: 048
     Dates: start: 20080501
  2. PROLIA [Suspect]
     Indication: OSTEOPOROSIS
     Dosage: UNK UNK, Q2MO
     Dates: start: 20110511, end: 20110101

REACTIONS (8)
  - HYPERSENSITIVITY [None]
  - ECZEMA [None]
  - RASH PAPULAR [None]
  - HERPES ZOSTER [None]
  - PRURITUS [None]
  - INSOMNIA [None]
  - LYMPHADENOPATHY [None]
  - PYREXIA [None]
